FAERS Safety Report 4892587-X (Version None)
Quarter: 2006Q1

REPORT INFORMATION
  Report Type: 
  Country: None (occurrence: None)
  Receive Date: 20060125
  Receipt Date: 20060125
  Transmission Date: 20060701
  Serious: Yes (Life-Threatening, Hospitalization)
  Sender: FDA-Public Use
  Company Number: None

PATIENT
  Sex: Male
  Weight: 136.0791 kg

DRUGS (10)
  1. TOPIRAMATE [Suspect]
     Indication: ANXIETY
     Dosage: 25 MG AT BED TIME
  2. TOPIRAMATE [Suspect]
     Indication: TENSION
     Dosage: 25 MG AT BED TIME
  3. GINKGO BILOBA [Suspect]
     Indication: BLOOD PRESSURE
     Dosage: PER LABEL
  4. GINKGO BILOBA [Suspect]
     Indication: COAGULOPATHY
     Dosage: PER LABEL
  5. ASCORBIC ACID [Concomitant]
  6. VITAMIN E [Concomitant]
  7. DHA [Concomitant]
  8. OMEGA OIL [Concomitant]
  9. COQ10 [Concomitant]
  10. CAYENNE PEPPER [Concomitant]

REACTIONS (13)
  - ANGINA PECTORIS [None]
  - ANXIETY [None]
  - ASTHENIA [None]
  - CHEST DISCOMFORT [None]
  - CONTRAINDICATION TO MEDICAL TREATMENT [None]
  - DIZZINESS [None]
  - DRUG INTERACTION [None]
  - DYSPHONIA [None]
  - DYSPNOEA [None]
  - ELECTROCARDIOGRAM ABNORMAL [None]
  - MYOCARDIAL ISCHAEMIA [None]
  - PANIC ATTACK [None]
  - SHOULDER PAIN [None]
